FAERS Safety Report 14955340 (Version 1)
Quarter: 2018Q2

REPORT INFORMATION
  Report Type: Spontaneous
  Country: US (occurrence: US)
  Receive Date: 20180531
  Receipt Date: 20180531
  Transmission Date: 20180711
  Serious: No
  Sender: FDA-Public Use
  Company Number: US-ASTRAZENECA-2018SE59248

PATIENT
  Age: 27806 Day
  Sex: Male
  Weight: 54.4 kg

DRUGS (3)
  1. SPIRIA RESPIMAT [Concomitant]
     Indication: EMPHYSEMA
     Route: 055
  2. ALBUTEROL SULFATE. [Concomitant]
     Active Substance: ALBUTEROL SULFATE
     Indication: EMPHYSEMA
     Dosage: EVERY FOUR HOURS
     Route: 055
  3. SYMBICORT [Suspect]
     Active Substance: BUDESONIDE\FORMOTEROL FUMARATE DIHYDRATE
     Indication: EMPHYSEMA
     Dosage: 160/4.5MCG, TWO INHALATIONS, TWICE DAILY
     Route: 055

REACTIONS (4)
  - Dyspnoea exertional [Unknown]
  - Device malfunction [Unknown]
  - Intentional product misuse [Unknown]
  - Weight decreased [Unknown]

NARRATIVE: CASE EVENT DATE: 20180331
